FAERS Safety Report 25867262 (Version 1)
Quarter: 2025Q4

REPORT INFORMATION
  Report Type: Spontaneous
  Country: US (occurrence: US)
  Receive Date: 20251001
  Receipt Date: 20251001
  Transmission Date: 20260118
  Serious: No
  Sender: TWI PHARMACEUTICALS
  Company Number: US-TWI PHARMACEUTICAL, INC-20241100231

PATIENT
  Sex: Female

DRUGS (5)
  1. DILTIAZEM HYDROCHLORIDE [Suspect]
     Active Substance: DILTIAZEM HYDROCHLORIDE
     Indication: Hypertension
     Dosage: UNK, DAILY
     Route: 065
     Dates: start: 20241002
  2. XARELTO [Concomitant]
     Active Substance: RIVAROXABAN
     Indication: Anticoagulant therapy
     Dosage: UNK UNK, DAILY
     Route: 065
     Dates: start: 20241002, end: 2024
  3. SYNTHROID [Concomitant]
     Active Substance: LEVOTHYROXINE SODIUM
     Indication: Thyroid disorder
     Dosage: UNK, DAILY
     Route: 065
     Dates: start: 1995
  4. LIBRAX [Concomitant]
     Active Substance: CHLORDIAZEPOXIDE HYDROCHLORIDE\CLIDINIUM BROMIDE
     Indication: Gastrointestinal disorder
     Dosage: UNK UNK, PRN
     Route: 065
  5. DIAZEPAM [Concomitant]
     Active Substance: DIAZEPAM
     Indication: Fibromyalgia
     Dosage: UNK UNK, PRN
     Route: 065
     Dates: start: 2014

REACTIONS (1)
  - Pain [Unknown]

NARRATIVE: CASE EVENT DATE: 20240101
